FAERS Safety Report 4277198-1 (Version None)
Quarter: 2004Q1

REPORT INFORMATION
  Report Type: 
  Country: None (occurrence: None)
  Receive Date: 20040120
  Receipt Date: 20040114
  Transmission Date: 20041129
  Serious: Yes (Life-Threatening, Hospitalization, Disabling)
  Sender: FDA-Public Use
  Company Number: THQ2004A00017

PATIENT
  Age: 72 Year
  Sex: Male

DRUGS (3)
  1. LANSOPRAZOLE [Suspect]
     Indication: GASTRITIS
     Dosage: 30 MG (1 D) PER ORAL
     Route: 048
     Dates: start: 20031029, end: 20031201
  2. ACETAZOLAMIDE [Concomitant]
  3. MESALAZINE (MESALAZINE) [Concomitant]

REACTIONS (6)
  - ALANINE AMINOTRANSFERASE INCREASED [None]
  - BLOOD ALKALINE PHOSPHATASE INCREASED [None]
  - DERMATITIS EXFOLIATIVE [None]
  - EOSINOPHILIA [None]
  - INTERNATIONAL NORMALISED RATIO INCREASED [None]
  - NEUTROPHILIA [None]
